FAERS Safety Report 17233343 (Version 1)
Quarter: 2020Q1

REPORT INFORMATION
  Report Type: Spontaneous
  Country: ES (occurrence: ES)
  Receive Date: 20200104
  Receipt Date: 20200104
  Transmission Date: 20200409
  Serious: Yes (Other)
  Sender: FDA-Public Use
  Company Number: ES-AUROBINDO-AUR-APL-2020-000190

PATIENT
  Age: 76 Year
  Sex: Female

DRUGS (2)
  1. DAFLON [BIOFLAVONOIDS;DIOSMIN;HESPERIDIN] [Suspect]
     Active Substance: BIOFLAVONOIDS\DIOSMIN\HESPERIDIN
     Indication: JOINT SWELLING
     Dosage: UNK
     Route: 065
     Dates: start: 20190712
  2. FUROSEMIDE. [Suspect]
     Active Substance: FUROSEMIDE
     Indication: JOINT SWELLING
     Dosage: UNK
     Dates: start: 20190712, end: 201911

REACTIONS (1)
  - Hyponatraemia [Unknown]

NARRATIVE: CASE EVENT DATE: 201911
